FAERS Safety Report 6554589-7 (Version None)
Quarter: 2010Q1

REPORT INFORMATION
  Report Type: 
  Country: None (occurrence: None)
  Receive Date: 20100127
  Receipt Date: 20100121
  Transmission Date: 20100710
  Serious: Yes (Other)
  Sender: FDA-Public Use
  Company Number: BR-SANOFI-AVENTIS-2010SA004137

PATIENT
  Age: 58 Year
  Sex: Female
  Weight: 58 kg

DRUGS (5)
  1. LANTUS [Suspect]
     Indication: TYPE 2 DIABETES MELLITUS
     Route: 058
     Dates: start: 20080101
  2. HUMALOG [Concomitant]
     Indication: TYPE 2 DIABETES MELLITUS
     Dosage: AFTER MEALS
     Route: 058
  3. CALCIUM [Concomitant]
     Route: 048
  4. AAS [Concomitant]
     Dosage: 2 TABS PER DAY
     Route: 048
     Dates: start: 20091017
  5. TIMOLOL MALEATE [Concomitant]
     Dates: start: 20091017

REACTIONS (8)
  - ASTHENIA [None]
  - BLINDNESS [None]
  - BLOOD GLUCOSE DECREASED [None]
  - BLOOD GLUCOSE INCREASED [None]
  - COLD SWEAT [None]
  - EYE HAEMORRHAGE [None]
  - HEADACHE [None]
  - INTRAOCULAR PRESSURE INCREASED [None]
